FAERS Safety Report 5210311-8 (Version None)
Quarter: 2007Q1

REPORT INFORMATION
  Report Type: 
  Country: None (occurrence: None)
  Receive Date: 20070117
  Receipt Date: 20070108
  Transmission Date: 20070707
  Serious: Yes (Congenital Anomaly)
  Sender: FDA-Public Use
  Company Number: PHEH2007US00692

PATIENT
  Age: 16 Day
  Sex: Female
  Weight: 2.993 kg

DRUGS (1)
  1. TEGRETOL [Suspect]
     Dosage: 800 MG, QD
     Route: 064

REACTIONS (2)
  - CATARACT CONGENITAL [None]
  - DRUG EXPOSURE DURING PREGNANCY [None]
